FAERS Safety Report 4930214-3 (Version None)
Quarter: 2006Q1

REPORT INFORMATION
  Report Type: 
  Country: None (occurrence: None)
  Receive Date: 20060302
  Receipt Date: 20051128
  Transmission Date: 20060701
  Serious: Yes (Other)
  Sender: FDA-Public Use
  Company Number: BR-ROCHE-426793

PATIENT
  Age: 23 Year
  Sex: Female
  Weight: 58 kg

DRUGS (3)
  1. ROACUTAN [Suspect]
     Indication: ACNE
     Dosage: DOSING REGIMEN STATED AS IRREGULARLY.
     Route: 048
     Dates: start: 20051008, end: 20051022
  2. ROACUTAN [Suspect]
     Route: 048
     Dates: start: 20050215, end: 20051007
  3. TRIVORA-21 [Concomitant]
     Indication: CONTRACEPTION
     Dosage: DOSING REGIMEN STATED AS IRREGULARLY. DRUG NAME STATED AS LEVEL.
     Route: 048
     Dates: start: 20050215, end: 20051015

REACTIONS (3)
  - DRUG EXPOSURE DURING PREGNANCY [None]
  - NO ADVERSE EFFECT [None]
  - PREGNANCY [None]
